FAERS Safety Report 14698949 (Version 5)
Quarter: 2018Q2

REPORT INFORMATION
  Report Type: Report from Study
  Country: DE (occurrence: DE)
  Receive Date: 20180330
  Receipt Date: 20180626
  Transmission Date: 20180711
  Serious: No
  Sender: FDA-Public Use
  Company Number: DE-ROCHE-2096691

PATIENT
  Age: 50 Year
  Sex: Male

DRUGS (2)
  1. OCREVUS [Suspect]
     Active Substance: OCRELIZUMAB
     Indication: PRIMARY PROGRESSIVE MULTIPLE SCLEROSIS
     Route: 042
     Dates: start: 20180226
  2. VALPROAT CHRONO [Concomitant]
     Active Substance: VALPROATE SODIUM
     Dosage: 750-0-750 MG
     Route: 065

REACTIONS (10)
  - Fatigue [Recovered/Resolved]
  - Thirst [Recovered/Resolved]
  - Nasopharyngitis [Unknown]
  - Pyrexia [Recovered/Resolved]
  - Dizziness [Recovered/Resolved]
  - Vomiting [Recovered/Resolved]
  - Pruritus [Recovered/Resolved]
  - Chills [Recovered/Resolved]
  - Nausea [Recovered/Resolved]
  - Headache [Recovered/Resolved]

NARRATIVE: CASE EVENT DATE: 20180226
